FAERS Safety Report 25305504 (Version 4)
Quarter: 2025Q3

REPORT INFORMATION
  Report Type: Report from Study
  Country: US (occurrence: US)
  Receive Date: 20250513
  Receipt Date: 20250805
  Transmission Date: 20251020
  Serious: Yes (Other)
  Sender: ABBVIE
  Company Number: US-ABBVIE-6276462

PATIENT
  Age: 66 Year
  Sex: Male
  Weight: 131.54 kg

DRUGS (3)
  1. RINVOQ [Suspect]
     Active Substance: UPADACITINIB
     Indication: Psoriatic arthropathy
     Dosage: FORM STRENGTH: 15MILLIGRAM
     Route: 048
     Dates: start: 20241228, end: 20250724
  2. RINVOQ [Suspect]
     Active Substance: UPADACITINIB
     Indication: Psoriatic arthropathy
     Route: 048
  3. ZEPBOUND [Concomitant]
     Active Substance: TIRZEPATIDE
     Indication: Weight increased

REACTIONS (6)
  - Cataract [Recovered/Resolved]
  - Increased appetite [Recovered/Resolved]
  - Weight increased [Not Recovered/Not Resolved]
  - Oral surgery [Unknown]
  - Psoriasis [Unknown]
  - Musculoskeletal disorder [Unknown]

NARRATIVE: CASE EVENT DATE: 20250101
